FAERS Safety Report 17670768 (Version 1)
Quarter: 2020Q2

REPORT INFORMATION
  Report Type: Spontaneous
  Country: US (occurrence: US)
  Receive Date: 20200415
  Receipt Date: 20200415
  Transmission Date: 20200713
  Serious: No
  Sender: FDA-Public Use
  Company Number: None

PATIENT
  Age: 71 Year
  Sex: Female
  Weight: 75.6 kg

DRUGS (7)
  1. MVI [Concomitant]
     Active Substance: VITAMINS
  2. COQ10 [Concomitant]
     Active Substance: UBIDECARENONE
  3. CAPECITABINE. [Suspect]
     Active Substance: CAPECITABINE
     Indication: BREAST CANCER
     Route: 048
     Dates: start: 20200319
  4. CALCIUM [Concomitant]
     Active Substance: CALCIUM
  5. PROTONIX [Concomitant]
     Active Substance: PANTOPRAZOLE SODIUM
  6. VITAMIN D [Concomitant]
     Active Substance: VITAMIN D NOS
  7. TYLENOL [Concomitant]
     Active Substance: ACETAMINOPHEN

REACTIONS (1)
  - Fatigue [None]

NARRATIVE: CASE EVENT DATE: 20200415
